FAERS Safety Report 5525723-2 (Version None)
Quarter: 2007Q4

REPORT INFORMATION
  Report Type: 
  Country: None (occurrence: None)
  Receive Date: 20071126
  Receipt Date: 20070604
  Transmission Date: 20080405
  Serious: Yes (Disabling, Other)
  Sender: FDA-Public Use
  Company Number: US-ASTRAZENECA-2007UW16987

PATIENT
  Age: 50 Year
  Sex: Male
  Weight: 111.8 kg

DRUGS (4)
  1. SEROQUEL [Suspect]
     Indication: ANXIETY
     Dosage: 100-300MG
     Route: 048
     Dates: start: 20030101, end: 20060101
  2. SEROQUEL [Suspect]
     Indication: INSOMNIA
     Dosage: 100-300MG
     Route: 048
     Dates: start: 20030101, end: 20060101
  3. WELLBUTRIN [Concomitant]
     Dosage: 2/DAY
     Dates: start: 20030101, end: 20060101
  4. PROZAC [Concomitant]
     Dosage: 1/DAY
     Dates: start: 20050101, end: 20060101

REACTIONS (4)
  - DIABETES MELLITUS [None]
  - DIABETIC KETOACIDOSIS [None]
  - ERECTILE DYSFUNCTION [None]
  - OVERDOSE [None]
